FAERS Safety Report 8430380-1 (Version None)
Quarter: 2012Q2

REPORT INFORMATION
  Report Type: 
  Country: None (occurrence: None)
  Receive Date: 20120612
  Receipt Date: 20120529
  Transmission Date: 20120825
  Serious: Yes (Death, Hospitalization, Other)
  Sender: FDA-Public Use
  Company Number: US-ACTELION-A-US2012-63400

PATIENT

DRUGS (18)
  1. ALDACTONE [Concomitant]
  2. ZOFRAN [Concomitant]
  3. POTASSIUM CHLORIDE [Concomitant]
  4. EPOPROSTENOL SODIUM [Suspect]
     Dosage: 5.5 NG/KG, PER MIN
     Route: 042
     Dates: end: 20120510
  5. LASIX [Concomitant]
  6. ZOLOFT [Concomitant]
  7. TRAMADOL HCL [Concomitant]
  8. VITAMIN A [Concomitant]
  9. COMBIVENT [Concomitant]
  10. FEXOFENADINE [Concomitant]
  11. CEPHULAC [Concomitant]
  12. NEXIUM [Concomitant]
  13. EPOPROSTENOL SODIUM [Suspect]
     Indication: PULMONARY ARTERIAL HYPERTENSION
     Dosage: 10 NG/KG, PER MIN
     Route: 042
     Dates: start: 20110929
  14. CALCIUM [Concomitant]
  15. FLEXERIL [Concomitant]
  16. MULTI-VITAMIN [Concomitant]
  17. VIAGRA [Concomitant]
  18. ZINC SULFATE [Concomitant]

REACTIONS (30)
  - SEPTIC SHOCK [None]
  - MALNUTRITION [None]
  - CACHEXIA [None]
  - HEPATIC ENCEPHALOPATHY [None]
  - FALL [None]
  - CANDIDIASIS [None]
  - ASTHENIA [None]
  - URINARY TRACT INFECTION ENTEROCOCCAL [None]
  - VAGINAL HAEMORRHAGE [None]
  - HEPATORENAL SYNDROME [None]
  - MALAISE [None]
  - ANXIETY [None]
  - DELIRIUM [None]
  - LEUKOCYTOSIS [None]
  - RENAL FAILURE ACUTE [None]
  - PULMONARY ARTERIAL HYPERTENSION [None]
  - HYPOXIA [None]
  - DECREASED APPETITE [None]
  - FAILURE TO THRIVE [None]
  - ASCITES [None]
  - RESPIRATORY FAILURE [None]
  - DEHYDRATION [None]
  - WEIGHT DECREASED [None]
  - GENITAL HERPES [None]
  - AGITATION [None]
  - DEATH [None]
  - CHRONIC HEPATIC FAILURE [None]
  - STAPHYLOCOCCAL BACTERAEMIA [None]
  - BEDRIDDEN [None]
  - DIARRHOEA [None]
